FAERS Safety Report 6056252-8 (Version None)
Quarter: 2009Q1

REPORT INFORMATION
  Report Type: 
  Country: None (occurrence: None)
  Receive Date: 20090126
  Receipt Date: 20090126
  Transmission Date: 20090719
  Serious: No
  Sender: FDA-Public Use
  Company Number: None

PATIENT
  Sex: Female
  Weight: 80.45 kg

DRUGS (5)
  1. HYDROCHLOROTHIAZIDE [Suspect]
     Dosage: 25MG TABLET QD
     Route: 048
     Dates: start: 20080806, end: 20090123
  2. ASPIRIN [Concomitant]
  3. BENADRYL ORAL (DIPHENHYDRAMINE ORAL) [Concomitant]
  4. FLEXERIL [Concomitant]
  5. LISINOPRIL [Concomitant]

REACTIONS (1)
  - HEADACHE [None]
